FAERS Safety Report 11911436 (Version 1)
Quarter: 2016Q1

REPORT INFORMATION
  Report Type: Spontaneous
  Country: JP (occurrence: JP)
  Receive Date: 20160112
  Receipt Date: 20160112
  Transmission Date: 20160526
  Serious: Yes (Other)
  Sender: FDA-Public Use
  Company Number: JP-PFIZER INC-2016001209

PATIENT
  Age: 50 Year
  Sex: Female

DRUGS (3)
  1. DIFLUCAN [Suspect]
     Active Substance: FLUCONAZOLE
     Dosage: 400 MG, DAILY
     Route: 041
  2. TRYPTANOL /00002202/ [Interacting]
     Active Substance: AMITRIPTYLINE
     Dosage: 150 MG, DAILY
     Route: 048
  3. ZYPREXA [Interacting]
     Active Substance: OLANZAPINE
     Dosage: 10 MG, DAILY

REACTIONS (2)
  - Drug interaction [Unknown]
  - Delirium [Unknown]
